FAERS Safety Report 26071210 (Version 1)
Quarter: 2025Q4

REPORT INFORMATION
  Report Type: Report from Study
  Country: US (occurrence: US)
  Receive Date: 20251120
  Receipt Date: 20251120
  Transmission Date: 20260118
  Serious: No
  Sender: MALLINCKRODT
  Company Number: US-MALLINCKRODT-MNK202506891

PATIENT
  Age: 54 Year
  Sex: Male
  Weight: 140 kg

DRUGS (3)
  1. CORTICOTROPIN [Suspect]
     Active Substance: CORTICOTROPIN
     Indication: Rheumatoid arthritis
     Dosage: 80 UNITS
     Route: 058
     Dates: start: 20251020
  2. TRELEGY ELLIPTA [Concomitant]
     Active Substance: FLUTICASONE FUROATE\UMECLIDINIUM BROMIDE\VILANTEROL TRIFENATATE
     Dosage: UNKNOWN
  3. FLUTAMIDE [Concomitant]
     Active Substance: FLUTAMIDE
     Dosage: UNKNOWN

REACTIONS (3)
  - Headache [Unknown]
  - Asthenia [Unknown]
  - Fatigue [Unknown]

NARRATIVE: CASE EVENT DATE: 20251001
